FAERS Safety Report 7737338-6 (Version None)
Quarter: 2011Q3

REPORT INFORMATION
  Report Type: 
  Country: None (occurrence: None)
  Receive Date: 20110908
  Receipt Date: 20110831
  Transmission Date: 20111222
  Serious: Yes (Other)
  Sender: FDA-Public Use
  Company Number: JP-TEVA-298575ISR

PATIENT
  Age: 6 Year
  Sex: Male

DRUGS (4)
  1. BLEOMYCIN SULFATE [Suspect]
     Indication: BRAIN NEOPLASM
     Dates: start: 19930713
  2. CYCLOPHOSPHAMIDE [Suspect]
     Indication: BRAIN NEOPLASM
     Dates: start: 19930713
  3. VINBLASTINE SULFATE [Suspect]
     Indication: BRAIN NEOPLASM
     Dates: start: 19930713
  4. CISPLATIN [Suspect]
     Indication: BRAIN NEOPLASM
     Dosage: 6HR INFUSIONS WITH MANNITOL INDUCED DIURESIS
     Route: 042
     Dates: start: 19930713

REACTIONS (5)
  - LEUKOPENIA [None]
  - VOMITING [None]
  - HYPONATRAEMIA [None]
  - RENAL TUBULAR DISORDER [None]
  - INFREQUENT BOWEL MOVEMENTS [None]
